FAERS Safety Report 6420013-8 (Version None)
Quarter: 2009Q4

REPORT INFORMATION
  Report Type: 
  Country: None (occurrence: None)
  Receive Date: 20091029
  Receipt Date: 20080916
  Transmission Date: 20100525
  Serious: No
  Sender: FDA-Public Use
  Company Number: A0747933A

PATIENT
  Sex: Female

DRUGS (3)
  1. IMITREX [Suspect]
     Indication: MIGRAINE
     Route: 045
  2. IMITREX [Suspect]
     Route: 048
  3. IMITREX [Suspect]
     Route: 058

REACTIONS (1)
  - DRUG INEFFECTIVE [None]
